FAERS Safety Report 6730907-1 (Version None)
Quarter: 2010Q2

REPORT INFORMATION
  Report Type: 
  Country: None (occurrence: None)
  Receive Date: 20100518
  Receipt Date: 20100510
  Transmission Date: 20101027
  Serious: Yes (Hospitalization, Other)
  Sender: FDA-Public Use
  Company Number: PHHY2010FR30088

PATIENT
  Sex: Male

DRUGS (12)
  1. NEORAL [Suspect]
     Indication: RENAL TRANSPLANT
     Dosage: 125 MG, BID
     Route: 048
     Dates: start: 20080112
  2. CELLCEPT [Suspect]
     Indication: RENAL TRANSPLANT
     Dosage: 1250 MG, BID
     Route: 048
     Dates: start: 20080112, end: 20091231
  3. CORTANCYL [Suspect]
     Indication: RENAL TRANSPLANT
     Dosage: 7.5 MG, QD
     Route: 048
     Dates: start: 20080112
  4. MABTHERA [Suspect]
     Indication: NEPHROPATHY
     Dosage: UNK
     Route: 058
     Dates: start: 20081101
  5. COTAREG ^NOVARTIS^ [Concomitant]
  6. FELODIPINE [Concomitant]
  7. ADANCOR [Concomitant]
  8. KARDEGIC [Concomitant]
  9. CRESTOR [Concomitant]
  10. INIPOMP [Concomitant]
  11. NEORECORMON ^BOEHRINGER MANNHEIM^ [Concomitant]
  12. BICARBONATE [Concomitant]

REACTIONS (11)
  - ARTHRITIS [None]
  - BORDETELLA INFECTION [None]
  - GLOMERULONEPHRITIS MEMBRANOPROLIFERATIVE [None]
  - GOUT [None]
  - LEUKOPENIA [None]
  - NEUTROPHIL COUNT DECREASED [None]
  - OSTEOARTHRITIS [None]
  - PYREXIA [None]
  - RENAL FAILURE [None]
  - SEPSIS [None]
  - SYSTEMIC INFLAMMATORY RESPONSE SYNDROME [None]
